FAERS Safety Report 6613539-5 (Version None)
Quarter: 2010Q1

REPORT INFORMATION
  Report Type: 
  Country: None (occurrence: None)
  Receive Date: 20100226
  Receipt Date: 20100216
  Transmission Date: 20100710
  Serious: Yes (Death, Hospitalization)
  Sender: FDA-Public Use
  Company Number: 2009AC000047

PATIENT
  Age: 84 Year
  Sex: Female
  Weight: 46.7205 kg

DRUGS (26)
  1. DIGOXIN [Suspect]
     Dosage: 0.125 MG; QD; PO
     Route: 048
     Dates: start: 19960301, end: 20080201
  2. DIGOXIN [Suspect]
     Indication: HYPERTENSIVE HEART DISEASE
     Dosage: .125 MG;QD;PO
     Route: 048
     Dates: start: 19960301, end: 19991201
  3. DIGOXIN [Suspect]
     Indication: ATRIAL FIBRILLATION
     Dosage: .125 MG;QD;PO
     Route: 048
     Dates: start: 20000301
  4. DIGOXIN [Suspect]
     Dosage: .125 MG;QD;PO
     Route: 048
     Dates: start: 20051001
  5. FUROSEMIDE [Concomitant]
  6. MECLIZINE [Concomitant]
  7. ALPRAZOLAM [Concomitant]
  8. XALATAN [Concomitant]
  9. TIMOLOL MALEATE [Concomitant]
  10. ATACAND HCT [Concomitant]
  11. VITAPLEX [Concomitant]
  12. DILTIAZEM HCL [Concomitant]
  13. RENAX [Concomitant]
  14. AVANDIA [Concomitant]
  15. VITAMIN D [Concomitant]
  16. AMOXICILLIN [Concomitant]
  17. RENAGEL [Concomitant]
  18. ACTOS [Concomitant]
  19. ARANESP [Concomitant]
  20. IRON [Concomitant]
  21. LASIX [Concomitant]
  22. LIPITOR [Concomitant]
  23. QUINIDINE HCL [Concomitant]
  24. VITAMIN D2 [Concomitant]
  25. TIMOLOL MALEATE OPHTHALMIC [Concomitant]
  26. DILTIAZEM HCL [Concomitant]

REACTIONS (28)
  - ACUTE RESPIRATORY DISTRESS SYNDROME [None]
  - ANHEDONIA [None]
  - ATRIAL FIBRILLATION [None]
  - ATRIAL FLUTTER [None]
  - BACK PAIN [None]
  - CARDIAC FAILURE CONGESTIVE [None]
  - CARDIOACTIVE DRUG LEVEL INCREASED [None]
  - CONDITION AGGRAVATED [None]
  - DEPRESSION [None]
  - DIARRHOEA [None]
  - EMOTIONAL DISTRESS [None]
  - HYDRONEPHROSIS [None]
  - INSOMNIA [None]
  - MENTAL DISORDER [None]
  - MULTIPLE INJURIES [None]
  - MYOCARDIAL INFARCTION [None]
  - PAIN [None]
  - PULMONARY OEDEMA [None]
  - RENAL FAILURE ACUTE [None]
  - RESPIRATORY FAILURE [None]
  - SICK SINUS SYNDROME [None]
  - SINUSITIS [None]
  - TACHYCARDIA [None]
  - THERAPEUTIC AGENT TOXICITY [None]
  - TINNITUS [None]
  - UNEVALUABLE EVENT [None]
  - VISION BLURRED [None]
  - VOMITING [None]
